FAERS Safety Report 8917060 (Version 3)
Quarter: 2012Q4

REPORT INFORMATION
  Report Type: 
  Country: GB (occurrence: GB)
  Receive Date: 20121120
  Receipt Date: 20121213
  Transmission Date: 20130627
  Serious: Yes (Other)
  Sender: FDA-Public Use
  Company Number: GB-RANBAXY-2012R1-61929

PATIENT
  Age: 61 Year
  Sex: Male

DRUGS (2)
  1. NAPROXEN [Suspect]
     Indication: GOUT
     Dosage: 500 mg, bid
     Route: 065
     Dates: start: 20120907, end: 20120915
  2. FELDENE [Concomitant]
     Indication: ANALGESIC THERAPY
     Dosage: UNK
     Route: 061

REACTIONS (3)
  - Oral discomfort [Recovering/Resolving]
  - Mouth ulceration [Recovered/Resolved]
  - Toothache [Recovering/Resolving]
